FAERS Safety Report 19031027 (Version 1)
Quarter: 2021Q1

REPORT INFORMATION
  Report Type: Spontaneous
  Country: US (occurrence: US)
  Receive Date: 20210319
  Receipt Date: 20210319
  Transmission Date: 20210420
  Serious: Yes (Other)
  Sender: FDA-Public Use
  Company Number: None

PATIENT
  Age: 44 Year
  Sex: Female
  Weight: 67.5 kg

DRUGS (11)
  1. STOOL SOFTENER (DOCUSATE) [Concomitant]
     Active Substance: DOCUSATE
  2. APTIOM [Concomitant]
     Active Substance: ESLICARBAZEPINE ACETATE
  3. EMGALITY [Concomitant]
     Active Substance: GALCANEZUMAB-GNLM
  4. AJOVY [Suspect]
     Active Substance: FREMANEZUMAB-VFRM
     Indication: MIGRAINE
     Dates: start: 20210115, end: 20210215
  5. SERTRALINE [Concomitant]
     Active Substance: SERTRALINE HYDROCHLORIDE
  6. PROBIOTIC [Concomitant]
     Active Substance: PROBIOTICS NOS
  7. LAMOTRIGINE. [Concomitant]
     Active Substance: LAMOTRIGINE
  8. RIZATRIPTAN. [Concomitant]
     Active Substance: RIZATRIPTAN
  9. TOPIRAMATE. [Concomitant]
     Active Substance: TOPIRAMATE
  10. QUETAPINE [Concomitant]
     Active Substance: QUETIAPINE
  11. HYDROXYZINE HYDROCHLORIDE. [Concomitant]
     Active Substance: HYDROXYZINE HYDROCHLORIDE

REACTIONS (4)
  - Injection site bruising [None]
  - Injection site swelling [None]
  - Skin reaction [None]
  - Wrong technique in product usage process [None]

NARRATIVE: CASE EVENT DATE: 20210215
